FAERS Safety Report 4333725-7 (Version None)
Quarter: 2004Q2

REPORT INFORMATION
  Report Type: 
  Country: None (occurrence: None)
  Receive Date: 20040406
  Receipt Date: 20040406
  Transmission Date: 20050107
  Serious: No
  Sender: FDA-Public Use
  Company Number: None

PATIENT
  Age: 67 Year
  Sex: Female

DRUGS (1)
  1. IMIPRAMINE [Suspect]
     Indication: SLEEP DISORDER
     Dosage: 5 TABS AT BEDTIME
     Dates: start: 20040301, end: 20040321

REACTIONS (5)
  - COUGH [None]
  - DYSGEUSIA [None]
  - HEADACHE [None]
  - HOARSENESS [None]
  - PHARMACEUTICAL PRODUCT COMPLAINT [None]
